FAERS Safety Report 20712601 (Version 1)
Quarter: 2022Q2

REPORT INFORMATION
  Report Type: Spontaneous
  Country: JP (occurrence: JP)
  Receive Date: 20220415
  Receipt Date: 20220415
  Transmission Date: 20220721
  Serious: Yes (Other)
  Sender: FDA-Public Use
  Company Number: JP-TAKEDA-2022TJP038134

PATIENT
  Age: 6 Decade
  Sex: Male

DRUGS (1)
  1. ALUNBRIG [Suspect]
     Active Substance: BRIGATINIB
     Indication: Non-small cell lung cancer
     Dosage: 90 MILLIGRAM, QD
     Route: 048
     Dates: start: 20220302, end: 20220404

REACTIONS (2)
  - Therapeutic product effect incomplete [Not Recovered/Not Resolved]
  - Metastases to liver [Unknown]
